FAERS Safety Report 13639200 (Version 1)
Quarter: 2017Q2

REPORT INFORMATION
  Report Type: Spontaneous
  Country: US (occurrence: US)
  Receive Date: 20170609
  Receipt Date: 20170609
  Transmission Date: 20170830
  Serious: No
  Sender: FDA-Public Use
  Company Number: US-ROCHE-1237251

PATIENT
  Age: 46 Year
  Sex: Female

DRUGS (3)
  1. KLONOPIN [Suspect]
     Active Substance: CLONAZEPAM
     Route: 048
     Dates: start: 20130613
  2. KLONOPIN [Suspect]
     Active Substance: CLONAZEPAM
     Indication: PANIC ATTACK
     Route: 048
     Dates: start: 201303
  3. KLONOPIN [Suspect]
     Active Substance: CLONAZEPAM
     Route: 048
     Dates: end: 20130609

REACTIONS (6)
  - Fear [Recovered/Resolved]
  - Alopecia [Not Recovered/Not Resolved]
  - Restlessness [Recovered/Resolved]
  - Panic attack [Recovered/Resolved]
  - Nightmare [Recovered/Resolved]
  - Insomnia [Recovered/Resolved]

NARRATIVE: CASE EVENT DATE: 20130609
